FAERS Safety Report 6786602-6 (Version None)
Quarter: 2010Q2

REPORT INFORMATION
  Report Type: 
  Country: None (occurrence: None)
  Receive Date: 20100623
  Receipt Date: 20100615
  Transmission Date: 20101027
  Serious: Yes (Other)
  Sender: FDA-Public Use
  Company Number: US-TEVA-237842USA

PATIENT
  Sex: Female

DRUGS (1)
  1. METOCLOPRAMIDE [Suspect]
     Route: 042
     Dates: start: 20010101, end: 20081201

REACTIONS (3)
  - CONVULSION [None]
  - EPILEPSY [None]
  - PANCREATITIS [None]
